FAERS Safety Report 8076363-5 (Version None)
Quarter: 2012Q1

REPORT INFORMATION
  Report Type: 
  Country: None (occurrence: None)
  Receive Date: 20120127
  Receipt Date: 20120117
  Transmission Date: 20120608
  Serious: Yes (Hospitalization)
  Sender: FDA-Public Use
  Company Number: US-ROCHE-1032887

PATIENT
  Sex: Female

DRUGS (3)
  1. PACLITAXEL [Suspect]
     Indication: FALLOPIAN TUBE CANCER
     Dosage: OVER 1 HR ON DAYS 1, 8 + 15 (CYCLES 1-6)
     Route: 042
     Dates: start: 20111109
  2. AVASTIN [Suspect]
     Indication: FALLOPIAN TUBE CANCER
     Dosage: OVER 30-90 MINUTES ON DAY 1 OF CYCLES 2+
     Route: 042
     Dates: start: 20111109
  3. CARBOPLATIN [Suspect]
     Indication: FALLOPIAN TUBE CANCER
     Dosage: AUC 6 ON DAY 1(CYCLES 1-6)
     Route: 042
     Dates: start: 20111109

REACTIONS (4)
  - PAIN [None]
  - ANASTOMOTIC ULCER [None]
  - OVARIAN CANCER METASTATIC [None]
  - NEOPLASM PROGRESSION [None]
